FAERS Safety Report 6676784-9 (Version None)
Quarter: 2010Q2

REPORT INFORMATION
  Report Type: 
  Country: None (occurrence: None)
  Receive Date: 20100412
  Receipt Date: 20100331
  Transmission Date: 20101027
  Serious: Yes (Hospitalization)
  Sender: FDA-Public Use
  Company Number: JP-ROCHE-692894

PATIENT
  Sex: Female
  Weight: 42 kg

DRUGS (13)
  1. XELODA [Suspect]
     Indication: RECTAL CANCER METASTATIC
     Dosage: DRUG: XELODA 300
     Route: 048
     Dates: start: 20091130, end: 20091210
  2. LIPITOR [Concomitant]
     Route: 048
  3. ASPIRIN [Concomitant]
     Dosage: DOSE FORM: ENTERIC COATING DRUG
     Route: 048
  4. ARTIST [Concomitant]
     Route: 048
  5. NORVASC [Concomitant]
     Dosage: DRUG: NORVASC OD ( AMLODIPINE BESILATE )
     Route: 048
  6. ACINON [Concomitant]
     Route: 048
  7. ALOSENN [Concomitant]
     Dosage: DRUG: ALOSENN (SENNA LEAF_SENNA POD), DOSE FORM: GRANULATED POWDER.
     Route: 048
  8. PURSENNID [Concomitant]
     Route: 048
  9. ALFAROL [Concomitant]
     Dosage: DOSE FORM: PERORAL AGENT
     Route: 048
  10. MICARDIS [Concomitant]
     Route: 048
  11. PRECIPITATED CALCIUM CARBONATE [Concomitant]
     Dosage: DOSE FORM: PERORAL AGENT
     Route: 048
  12. PRIMPERAN [Concomitant]
     Dosage: DOSE FORM: UNCERTAINITY
     Route: 065
     Dates: start: 20091107
  13. INSULIN [Concomitant]
     Route: 058
     Dates: start: 20050902

REACTIONS (1)
  - HYPERAMMONAEMIA [None]
